FAERS Safety Report 4577349-5 (Version None)
Quarter: 2005Q1

REPORT INFORMATION
  Report Type: 
  Country: None (occurrence: None)
  Receive Date: 20050208
  Receipt Date: 20040824
  Transmission Date: 20050727
  Serious: Yes (Other)
  Sender: FDA-Public Use
  Company Number: 200510077BBE

PATIENT
  Sex: Male

DRUGS (3)
  1. KOATE [Suspect]
     Indication: FACTOR VIII DEFICIENCY
     Dates: start: 19800101
  2. KOATE [Suspect]
     Indication: FACTOR VIII DEFICIENCY
     Dates: start: 19810101
  3. HEMOFIL [Suspect]
     Dates: start: 19820101

REACTIONS (2)
  - HEPATITIS B VIRUS [None]
  - HEPATITIS C VIRUS [None]
